FAERS Safety Report 14985824 (Version 1)
Quarter: 2018Q2

REPORT INFORMATION
  Report Type: Spontaneous
  Country: US (occurrence: US)
  Receive Date: 20180516
  Receipt Date: 20180516
  Transmission Date: 20180711
  Serious: Yes (Hospitalization)
  Sender: FDA-Public Use
  Company Number: None

PATIENT
  Age: 84 Year
  Sex: Male
  Weight: 65.5 kg

DRUGS (1)
  1. METOPROLOL. [Suspect]
     Active Substance: METOPROLOL
     Indication: ATRIAL FLUTTER
     Route: 048
     Dates: start: 20180221, end: 20180308

REACTIONS (10)
  - Dizziness [None]
  - Tachycardia [None]
  - Sinus node dysfunction [None]
  - Fall [None]
  - Sinus bradycardia [None]
  - Atrioventricular block second degree [None]
  - Atrial fibrillation [None]
  - Head injury [None]
  - Palpitations [None]
  - Atrial flutter [None]

NARRATIVE: CASE EVENT DATE: 20180308
